FAERS Safety Report 11687832 (Version 2)
Quarter: 2015Q4

REPORT INFORMATION
  Report Type: Spontaneous
  Country: US (occurrence: US)
  Receive Date: 20151030
  Receipt Date: 20151106
  Transmission Date: 20160304
  Serious: Yes (Hospitalization, Disabling, Other)
  Sender: FDA-Public Use
  Company Number: US-GLAXOSMITHKLINE-US2015151581

PATIENT
  Age: 66 Year
  Sex: Male

DRUGS (3)
  1. SPIRIVA [Suspect]
     Active Substance: TIOTROPIUM BROMIDE MONOHYDRATE
     Indication: PRODUCT USED FOR UNKNOWN INDICATION
     Dosage: UNK
  2. VENTOLIN HFA [Suspect]
     Active Substance: ALBUTEROL SULFATE
     Indication: CHRONIC OBSTRUCTIVE PULMONARY DISEASE
     Dosage: 1-2 PUFFS, QD
     Route: 055
  3. ADVAIR HFA [Suspect]
     Active Substance: FLUTICASONE PROPIONATE\SALMETEROL XINAFOATE
     Indication: CHRONIC OBSTRUCTIVE PULMONARY DISEASE
     Dosage: 1-2 PUFFS, QD

REACTIONS (18)
  - Upper-airway cough syndrome [Not Recovered/Not Resolved]
  - Stab wound [Unknown]
  - Coronary artery bypass [Unknown]
  - Intentional product use issue [Unknown]
  - Musculoskeletal pain [Unknown]
  - Joint prosthesis user [Unknown]
  - Prosthesis user [Unknown]
  - Underdose [Unknown]
  - Pneumonia [Unknown]
  - Hospitalisation [Unknown]
  - Gun shot wound [Unknown]
  - Injury [Unknown]
  - Gait disturbance [Unknown]
  - Contusion [Unknown]
  - Dyspnoea [Unknown]
  - Incorrect dose administered [Unknown]
  - Bone contusion [Unknown]
  - Stress [Unknown]

NARRATIVE: CASE EVENT DATE: 201505
